FAERS Safety Report 13186200 (Version 2)
Quarter: 2017Q2

REPORT INFORMATION
  Report Type: Spontaneous
  Country: US (occurrence: US)
  Receive Date: 20170204
  Receipt Date: 20170508
  Transmission Date: 20170830
  Serious: No
  Sender: FDA-Public Use
  Company Number: US-TEVA-728686ACC

PATIENT
  Age: 31 Year
  Sex: Female
  Weight: 59.47 kg

DRUGS (1)
  1. PARAGARD T 380A [Suspect]
     Active Substance: COPPER
     Indication: CONTRACEPTION
     Dates: start: 20161215

REACTIONS (1)
  - Complication associated with device [Recovering/Resolving]

NARRATIVE: CASE EVENT DATE: 20161229
